FAERS Safety Report 8967214 (Version 2)
Quarter: 2013Q1

REPORT INFORMATION
  Report Type: Spontaneous
  Country: MX (occurrence: MX)
  Receive Date: 20121217
  Receipt Date: 20130128
  Transmission Date: 20140127
  Serious: Yes (Hospitalization, Other)
  Sender: FDA-Public Use
  Company Number: MX-ELI_LILLY_AND_COMPANY-MX201210008060

PATIENT
  Sex: Female

DRUGS (6)
  1. HUMULIN 30% REGULAR, 70% NPH [Suspect]
     Dosage: 30 U, EACH MORNING
     Route: 064
     Dates: start: 20120217
  2. HUMULIN 30% REGULAR, 70% NPH [Suspect]
     Dosage: 30 U, EACH MORNING
     Route: 064
     Dates: start: 20120217
  3. HUMULIN 30% REGULAR, 70% NPH [Suspect]
     Dosage: 12 U, EACH EVENING
     Route: 064
     Dates: start: 20120217
  4. HUMULIN 30% REGULAR, 70% NPH [Suspect]
     Dosage: 12 U, EACH EVENING
     Route: 064
     Dates: start: 20120217
  5. FOLIC ACID [Concomitant]
     Route: 064
  6. FOLIC ACID [Concomitant]
     Route: 064

REACTIONS (5)
  - Lung cyst [Not Recovered/Not Resolved]
  - Pericardial effusion [Recovered/Resolved]
  - Foetal exposure during pregnancy [Recovered/Resolved]
  - Large for dates baby [Unknown]
  - Exposure during breast feeding [Not Recovered/Not Resolved]
